FAERS Safety Report 26098598 (Version 1)
Quarter: 2025Q4

REPORT INFORMATION
  Report Type: Spontaneous
  Country: US (occurrence: US)
  Receive Date: 20251127
  Receipt Date: 20251127
  Transmission Date: 20260118
  Serious: No
  Sender: GILEAD
  Company Number: US-GILEAD-2025-0737468

PATIENT

DRUGS (1)
  1. DESCOVY [Suspect]
     Active Substance: EMTRICITABINE\TENOFOVIR ALAFENAMIDE FUMARATE
     Indication: Product used for unknown indication
     Route: 065

REACTIONS (5)
  - Depression [Unknown]
  - Fatigue [Unknown]
  - Poor quality sleep [Unknown]
  - Influenza like illness [Unknown]
  - Feeling abnormal [Unknown]
